FAERS Safety Report 11845093 (Version 1)
Quarter: 2015Q4

REPORT INFORMATION
  Report Type: Spontaneous
  Country: US (occurrence: None)
  Receive Date: 20151216
  Receipt Date: 20151216
  Transmission Date: 20160314
  Serious: Yes (Hospitalization)
  Sender: FDA-Public Use
  Company Number: None

PATIENT
  Age: 69 Year
  Sex: Female

DRUGS (10)
  1. CALCIUM [Concomitant]
     Active Substance: CALCIUM
  2. PROBIOTIC [Concomitant]
     Active Substance: PROBIOTICS NOS
  3. GAS-X [Concomitant]
     Active Substance: DIMETHICONE
  4. TYLENOL [Concomitant]
     Active Substance: ACETAMINOPHEN
  5. VITAMIN D [Concomitant]
     Active Substance: CHOLECALCIFEROL
  6. BEPREVE [Concomitant]
     Active Substance: BEPOTASTINE BESILATE
  7. IODINE [Concomitant]
     Active Substance: IODINE
  8. MULTI FLORAL [Concomitant]
  9. FONDAPARINUX 10 MG/ 0.8 ML S [Suspect]
     Active Substance: FONDAPARINUX
     Indication: HYPOCOAGULABLE STATE
     Route: 058
  10. HNSW [Concomitant]

REACTIONS (1)
  - Myocardial infarction [None]

NARRATIVE: CASE EVENT DATE: 20151214
